FAERS Safety Report 17760595 (Version 1)
Quarter: 2020Q2

REPORT INFORMATION
  Report Type: Spontaneous
  Country: NL (occurrence: NL)
  Receive Date: 20200508
  Receipt Date: 20200508
  Transmission Date: 20200714
  Serious: Yes (Hospitalization)
  Sender: FDA-Public Use
  Company Number: NL-KYOWAKIRIN-2020BKK007221

PATIENT

DRUGS (1)
  1. POTELIGEO [Suspect]
     Active Substance: MOGAMULIZUMAB-KPKC
     Indication: CUTANEOUS T-CELL LYMPHOMA
     Dosage: EENMALIG 54MG (1MG/KG)
     Route: 065
     Dates: start: 20200414

REACTIONS (4)
  - Pyrexia [Recovering/Resolving]
  - Hypotension [Recovering/Resolving]
  - Disseminated intravascular coagulation [Recovering/Resolving]
  - Vomiting [Recovering/Resolving]

NARRATIVE: CASE EVENT DATE: 20200414
